FAERS Safety Report 7335853-0 (Version None)
Quarter: 2011Q1

REPORT INFORMATION
  Report Type: 
  Country: None (occurrence: None)
  Receive Date: 20110307
  Receipt Date: 20110221
  Transmission Date: 20110831
  Serious: Yes (Other)
  Sender: FDA-Public Use
  Company Number: DE-JNJFOC-20101202392

PATIENT
  Sex: Male
  Weight: 83 kg

DRUGS (3)
  1. DICLO-DIVIDO [Concomitant]
  2. AMITRIPTYLINE HCL [Concomitant]
     Route: 065
  3. PALEXIA RETARD [Suspect]
     Indication: PAIN
     Route: 048

REACTIONS (3)
  - PRURITUS [None]
  - DIZZINESS [None]
  - DEPRESSION [None]
